FAERS Safety Report 7819708-0 (Version None)
Quarter: 2011Q4

REPORT INFORMATION
  Report Type: 
  Country: None (occurrence: None)
  Receive Date: 20111018
  Receipt Date: 20110523
  Transmission Date: 20120403
  Serious: No
  Sender: FDA-Public Use
  Company Number: US-ASTRAZENECA-2010SE48248

PATIENT
  Age: 61 Year
  Sex: Female

DRUGS (6)
  1. ATACAND [Concomitant]
     Route: 048
  2. ALBUTEROL [Concomitant]
     Dosage: AT MORNING
  3. SYMBICORT [Suspect]
     Indication: CHRONIC OBSTRUCTIVE PULMONARY DISEASE
     Dosage: 160 MCG BID
     Route: 055
     Dates: start: 20101001
  4. NEXIUM [Concomitant]
     Route: 048
  5. SYMBICORT [Suspect]
     Dosage: AT NIGHT
     Route: 055
  6. IPRATROPIUM BROMIDE [Concomitant]
     Dosage: AT MORNING

REACTIONS (4)
  - PALPITATIONS [None]
  - INAPPROPRIATE SCHEDULE OF DRUG ADMINISTRATION [None]
  - DRUG DOSE OMISSION [None]
  - HEART RATE INCREASED [None]
